FAERS Safety Report 7843176-6 (Version None)
Quarter: 2011Q4

REPORT INFORMATION
  Report Type: 
  Country: None (occurrence: None)
  Receive Date: 20111025
  Receipt Date: 20111019
  Transmission Date: 20120403
  Serious: No
  Sender: FDA-Public Use
  Company Number: US-PFIZER INC-2011253314

PATIENT
  Sex: Male
  Weight: 125 kg

DRUGS (5)
  1. VIAGRA [Suspect]
     Dosage: UNK
  2. COUMADIN [Concomitant]
  3. AMBRISENTAN [Suspect]
     Indication: PULMONARY ARTERIAL HYPERTENSION
     Dosage: 10 MG, UNK
     Route: 048
     Dates: start: 20080701
  4. TREPROSTINIL SODIUM [Suspect]
     Indication: PULMONARY ARTERIAL HYPERTENSION
     Dosage: UNK
  5. REVATIO [Concomitant]
     Dosage: UNK

REACTIONS (3)
  - HYPOTENSION [None]
  - DIZZINESS [None]
  - OROPHARYNGEAL PAIN [None]
